FAERS Safety Report 12328669 (Version 1)
Quarter: 2016Q2

REPORT INFORMATION
  Report Type: Spontaneous
  Country: US (occurrence: US)
  Receive Date: 20160503
  Receipt Date: 20160503
  Transmission Date: 20160815
  Serious: No
  Sender: FDA-Public Use
  Company Number: US-BEH-2015050051

PATIENT
  Sex: Female
  Weight: 56 kg

DRUGS (19)
  1. PROPANOLOL-HCTZ [Concomitant]
  2. LATANOPROST. [Concomitant]
     Active Substance: LATANOPROST
  3. TEMAZEPAM. [Concomitant]
     Active Substance: TEMAZEPAM
  4. NAPROXEN. [Concomitant]
     Active Substance: NAPROXEN
  5. VITAMIN B12 [Concomitant]
     Active Substance: CYANOCOBALAMIN
  6. HIZENTRA [Suspect]
     Active Substance: HUMAN IMMUNOGLOBULIN G
     Indication: IMMUNODEFICIENCY COMMON VARIABLE
     Route: 058
  7. EPIPEN [Concomitant]
     Active Substance: EPINEPHRINE
  8. XANAX [Concomitant]
     Active Substance: ALPRAZOLAM
  9. VIGAMOX [Concomitant]
     Active Substance: MOXIFLOXACIN HYDROCHLORIDE
  10. CARVEDILOL. [Concomitant]
     Active Substance: CARVEDILOL
  11. PREMARIN [Concomitant]
     Active Substance: ESTROGENS, CONJUGATED
  12. AMLODIPINE [Concomitant]
     Active Substance: AMLODIPINE BESYLATE
  13. CALCIUM [Concomitant]
     Active Substance: CALCIUM
  14. LMX [Concomitant]
     Active Substance: LIDOCAINE
  15. HYZAAR [Concomitant]
     Active Substance: HYDROCHLOROTHIAZIDE\LOSARTAN POTASSIUM
  16. DETROL [Concomitant]
     Active Substance: TOLTERODINE TARTRATE
  17. BIOTIN [Concomitant]
     Active Substance: BIOTIN
  18. DIPHENHYDRAMINE. [Concomitant]
     Active Substance: DIPHENHYDRAMINE
  19. CLONIDINE. [Concomitant]
     Active Substance: CLONIDINE

REACTIONS (1)
  - Application site swelling [Recovered/Resolved]
